FAERS Safety Report 7422227-7 (Version None)
Quarter: 2011Q2

REPORT INFORMATION
  Report Type: 
  Country: None (occurrence: None)
  Receive Date: 20110418
  Receipt Date: 20110407
  Transmission Date: 20111010
  Serious: Yes (Other)
  Sender: FDA-Public Use
  Company Number: US-CEPHALON-2010002890

PATIENT
  Sex: Male
  Weight: 91 kg

DRUGS (2)
  1. MARIJUANA [Suspect]
  2. PROVIGIL [Suspect]
     Indication: NARCOLEPSY
     Route: 048
     Dates: start: 20100315

REACTIONS (3)
  - LOSS OF CONSCIOUSNESS [None]
  - MOOD ALTERED [None]
  - MEMORY IMPAIRMENT [None]
